FAERS Safety Report 5771551-2 (Version None)
Quarter: 2008Q2

REPORT INFORMATION
  Report Type: 
  Country: None (occurrence: None)
  Receive Date: 20080613
  Receipt Date: 20080610
  Transmission Date: 20081010
  Serious: Yes (Life-Threatening, Hospitalization)
  Sender: FDA-Public Use
  Company Number: JP-JNJFOC-20080503753

PATIENT
  Sex: Male

DRUGS (6)
  1. ITRIZOLE [Suspect]
     Indication: PYREXIA
     Route: 048
  2. AVELOX [Suspect]
     Indication: PYREXIA
     Route: 048
  3. DIGOSIN [Suspect]
     Indication: ATRIAL FIBRILLATION
     Route: 048
  4. URINORM [Concomitant]
     Indication: HYPERURICAEMIA
     Route: 048
  5. TORSEMIDE [Concomitant]
     Indication: CARDIAC FAILURE CHRONIC
     Route: 048
  6. WARFARIN SODIUM [Concomitant]
     Indication: PYREXIA
     Route: 048

REACTIONS (3)
  - CARDIAC ARREST [None]
  - ELECTROCARDIOGRAM QT PROLONGED [None]
  - TORSADE DE POINTES [None]
